FAERS Safety Report 15301670 (Version 1)
Quarter: 2018Q3

REPORT INFORMATION
  Report Type: Spontaneous
  Country: FR (occurrence: FR)
  Receive Date: 20180821
  Receipt Date: 20180821
  Transmission Date: 20181010
  Serious: Yes (Other)
  Sender: FDA-Public Use
  Company Number: FR-PFIZER INC-2018329050

PATIENT
  Age: 90 Year
  Sex: Female

DRUGS (1)
  1. ALPRESS [Suspect]
     Active Substance: PRAZOSIN
     Indication: HYPERTENSION
     Dosage: 2.5 MG, UNK

REACTIONS (4)
  - Wound complication [Unknown]
  - Ascites [Unknown]
  - Bronchial oedema [Unknown]
  - Oedema peripheral [Unknown]

NARRATIVE: CASE EVENT DATE: 20180813
